FAERS Safety Report 9427203 (Version 1)
Quarter: 2013Q3

REPORT INFORMATION
  Report Type: Spontaneous
  Country: US (occurrence: US)
  Receive Date: 20130730
  Receipt Date: 20130730
  Transmission Date: 20140515
  Serious: No
  Sender: FDA-Public Use
  Company Number: US-ABBOTT-12P-163-0976405-00

PATIENT
  Age: 50 Year
  Sex: Female
  Weight: 63.56 kg

DRUGS (3)
  1. NIASPAN (COATED) [Suspect]
     Indication: BLOOD TRIGLYCERIDES
     Dates: start: 20120817, end: 20120828
  2. GEMFIBROZIL [Concomitant]
     Indication: BLOOD TRIGLYCERIDES
     Dates: start: 20120817
  3. FISH OIL [Concomitant]
     Indication: BLOOD TRIGLYCERIDES

REACTIONS (2)
  - Rash erythematous [Not Recovered/Not Resolved]
  - Pruritus [Not Recovered/Not Resolved]
